FAERS Safety Report 7349769-7 (Version None)
Quarter: 2011Q1

REPORT INFORMATION
  Report Type: 
  Country: None (occurrence: None)
  Receive Date: 20110314
  Receipt Date: 20110304
  Transmission Date: 20110831
  Serious: Yes (Other)
  Sender: FDA-Public Use
  Company Number: FR-SANOFI-AVENTIS-2011SA013400

PATIENT
  Age: 76 Year
  Sex: Male

DRUGS (10)
  1. VALSARTAN/HYDROCHLOROTHIAZIDE [Concomitant]
     Route: 048
  2. MULTAQ [Suspect]
     Indication: ATRIAL FIBRILLATION
     Route: 048
     Dates: start: 20101117
  3. DIAMICRON [Interacting]
     Indication: TYPE 2 DIABETES MELLITUS
     Route: 048
  4. PROPRANOLOL [Concomitant]
     Route: 048
  5. PREVISCAN [Concomitant]
     Route: 048
  6. ROSUVASTATIN CALCIUM [Concomitant]
     Route: 048
  7. LERCANIDIPINE HYDROCHLORIDE [Concomitant]
     Route: 048
  8. LEVOTHYROX [Concomitant]
     Route: 048
  9. METFORMIN [Concomitant]
     Indication: TYPE 2 DIABETES MELLITUS
     Route: 048
  10. EZETROL [Concomitant]
     Route: 048

REACTIONS (2)
  - HYPOGLYCAEMIA [None]
  - DRUG INTERACTION [None]
